FAERS Safety Report 11227894 (Version 1)
Quarter: 2015Q2

REPORT INFORMATION
  Report Type: Spontaneous
  Country: GB (occurrence: GB)
  Receive Date: 20150630
  Receipt Date: 20150630
  Transmission Date: 20150821
  Serious: Yes (Disabling)
  Sender: FDA-Public Use
  Company Number: GB-TEVA-573283ACC

PATIENT
  Sex: Male
  Weight: 82 kg

DRUGS (1)
  1. WARFARIN [Suspect]
     Active Substance: WARFARIN
     Indication: AORTIC VALVE REPLACEMENT
     Route: 048
     Dates: start: 20140401

REACTIONS (4)
  - Activities of daily living impaired [Unknown]
  - Chest pain [Not Recovered/Not Resolved]
  - Headache [Not Recovered/Not Resolved]
  - Gingival bleeding [Not Recovered/Not Resolved]

NARRATIVE: CASE EVENT DATE: 20140501
